FAERS Safety Report 5872106-1 (Version None)
Quarter: 2008Q3

REPORT INFORMATION
  Report Type: 
  Country: None (occurrence: None)
  Receive Date: 20080905
  Receipt Date: 20080902
  Transmission Date: 20090109
  Serious: Yes (Hospitalization)
  Sender: FDA-Public Use
  Company Number: B0534453A

PATIENT
  Age: 59 Year
  Sex: Male

DRUGS (3)
  1. ARIXTRA [Suspect]
     Indication: PROPHYLAXIS
     Route: 058
  2. PLAVIX [Suspect]
     Route: 048
  3. COTAREG [Concomitant]

REACTIONS (2)
  - DRUG LEVEL INCREASED [None]
  - MOUTH HAEMORRHAGE [None]
